FAERS Safety Report 19902760 (Version 4)
Quarter: 2021Q4

REPORT INFORMATION
  Report Type: Report from Study
  Country: US (occurrence: US)
  Receive Date: 20211001
  Receipt Date: 20211217
  Transmission Date: 20220304
  Serious: No
  Sender: FDA-Public Use
  Company Number: NVSC2021US221841

PATIENT
  Sex: Female

DRUGS (1)
  1. ENTRESTO [Suspect]
     Active Substance: SACUBITRIL\VALSARTAN
     Indication: Product used for unknown indication
     Dosage: 1 DOSAGE FORM, BID (97/103 MG)
     Route: 048
     Dates: start: 202108

REACTIONS (5)
  - Fatigue [Unknown]
  - Asthenia [Unknown]
  - Blood pressure abnormal [Unknown]
  - Fluid retention [Recovering/Resolving]
  - Product dose omission issue [Unknown]
